FAERS Safety Report 4846293-8 (Version None)
Quarter: 2005Q4

REPORT INFORMATION
  Report Type: 
  Country: None (occurrence: None)
  Receive Date: 20051130
  Receipt Date: 20051122
  Transmission Date: 20060501
  Serious: Yes (Death, Life-Threatening, Hospitalization)
  Sender: FDA-Public Use
  Company Number: 163-20785-05100040

PATIENT
  Age: 69 Year
  Sex: Male
  Weight: 103.4201 kg

DRUGS (18)
  1. THALOMID [Suspect]
     Indication: MULTIPLE MYELOMA
     Dosage: 200 MG, DAILY, ORAL
     Route: 048
     Dates: start: 20050915, end: 20050919
  2. DEXAMETHASONE [Suspect]
     Indication: MULTIPLE MYELOMA
     Dosage: 40 MG, DAILY, ORAL
     Route: 048
     Dates: start: 20050915, end: 20050919
  3. ALLOPURINOL [Concomitant]
  4. HUMULIN-N INSULIN (INSULIN HUMAN INJECTION, ISOPHANE) [Concomitant]
  5. NYSTATIN [Concomitant]
  6. PROTONIX [Concomitant]
  7. ZOMETA [Concomitant]
  8. PLAVIX [Concomitant]
  9. DAPSONE [Concomitant]
  10. ARANESP [Concomitant]
  11. NEUTROPHOS (NEUTRA-PHOS) [Concomitant]
  12. ACYCLOVIR [Concomitant]
  13. BENICAR [Concomitant]
  14. HYDROCHLOROTHIAZIDE [Concomitant]
  15. NORVASC [Concomitant]
  16. NITROGLYCERIN [Concomitant]
  17. WARFARIN (WARFARIN) [Concomitant]
  18. OXYGEN (OXYGEN) [Concomitant]

REACTIONS (3)
  - CARDIAC DISORDER [None]
  - MYOCARDIAL INFARCTION [None]
  - RENAL FAILURE ACUTE [None]
